FAERS Safety Report 6373990-8 (Version None)
Quarter: 2009Q3

REPORT INFORMATION
  Report Type: 
  Country: None (occurrence: None)
  Receive Date: 20090924
  Receipt Date: 20090916
  Transmission Date: 20100115
  Serious: Yes (Other)
  Sender: FDA-Public Use
  Company Number: GR-ROCHE-657088

PATIENT
  Sex: Female

DRUGS (1)
  1. XENICAL [Suspect]
     Indication: WEIGHT CONTROL
     Route: 048
     Dates: start: 20070101

REACTIONS (2)
  - RENAL CYST [None]
  - WEIGHT LOSS POOR [None]
